FAERS Safety Report 19710947 (Version 1)
Quarter: 2021Q3

REPORT INFORMATION
  Report Type: Spontaneous
  Country: FR (occurrence: FR)
  Receive Date: 20210817
  Receipt Date: 20210817
  Transmission Date: 20211014
  Serious: Yes (Hospitalization)
  Sender: FDA-Public Use
  Company Number: FR-MYLANLABS-2021M1051439

PATIENT
  Age: 72 Year
  Sex: Female

DRUGS (4)
  1. TAVANIC [Suspect]
     Active Substance: LEVOFLOXACIN
     Indication: WOUND INFECTION
     Dosage: 1 DOSAGE FORM, QD
     Route: 048
     Dates: start: 202012
  2. LINEZOLID. [Suspect]
     Active Substance: LINEZOLID
     Indication: WOUND INFECTION
     Dosage: 1200 MILLIGRAM, QD
     Route: 048
     Dates: start: 20210201, end: 20210219
  3. TEICOPLANIN [Suspect]
     Active Substance: TEICOPLANIN
     Indication: WOUND INFECTION
     Dosage: 600 MILLIGRAM, QD
     Route: 042
     Dates: start: 202012, end: 20210201
  4. MINOCYCLINE [Suspect]
     Active Substance: MINOCYCLINE HYDROCHLORIDE
     Indication: WOUND INFECTION
     Dosage: 200 MILLIGRAM, QD
     Route: 048
     Dates: start: 202012, end: 20210219

REACTIONS (2)
  - Thrombocytopenia [Not Recovered/Not Resolved]
  - Neutropenia [Recovered/Resolved]

NARRATIVE: CASE EVENT DATE: 20210208
